FAERS Safety Report 6800020-3 (Version None)
Quarter: 2010Q2

REPORT INFORMATION
  Report Type: 
  Country: None (occurrence: None)
  Receive Date: 20100617
  Receipt Date: 20100609
  Transmission Date: 20101027
  Serious: Yes (Hospitalization, Other)
  Sender: FDA-Public Use
  Company Number: 2010SP032401

PATIENT
  Age: 36 Year
  Sex: Male

DRUGS (8)
  1. REFLEX (MIRTAZAPINE /01293201/) [Suspect]
     Indication: DEPRESSION
     Dosage: 15 MG;QD;PO
     Route: 048
     Dates: start: 20100426, end: 20100510
  2. FLUVOXAMINE MALEATE [Concomitant]
  3. ALPRAZOLAM [Concomitant]
  4. ERIZOLAM [Concomitant]
  5. ETIZOLAM [Concomitant]
  6. BROTIZOLAM [Concomitant]
  7. FLURAZEPAM HYDROCHLORIDE [Concomitant]
  8. DOGMATYL [Concomitant]

REACTIONS (4)
  - BLOOD CREATINE PHOSPHOKINASE INCREASED [None]
  - MOVEMENT DISORDER [None]
  - PAIN [None]
  - RHABDOMYOLYSIS [None]
